FAERS Safety Report 21903086 (Version 1)
Quarter: 2023Q1

REPORT INFORMATION
  Report Type: Report from Study
  Country: US (occurrence: US)
  Receive Date: 20230124
  Receipt Date: 20230124
  Transmission Date: 20230417
  Serious: No
  Sender: FDA-Public Use
  Company Number: US-BIOVITRUM-2023US01052

PATIENT
  Sex: Male
  Weight: 122 kg

DRUGS (2)
  1. DOPTELET [Suspect]
     Active Substance: AVATROMBOPAG MALEATE
     Indication: Immune thrombocytopenia
  2. DOPTELET [Suspect]
     Active Substance: AVATROMBOPAG MALEATE

REACTIONS (1)
  - Drug ineffective [Unknown]
